FAERS Safety Report 15195621 (Version 6)
Quarter: 2019Q1

REPORT INFORMATION
  Report Type: Spontaneous
  Country: US (occurrence: US)
  Receive Date: 20180725
  Receipt Date: 20190306
  Transmission Date: 20190417
  Serious: Yes (Other)
  Sender: FDA-Public Use
  Company Number: US-AMGEN-USASP2018100213

PATIENT
  Age: 57 Year
  Sex: Female
  Weight: 108.9 kg

DRUGS (8)
  1. MTX [Suspect]
     Active Substance: METHOTREXATE SODIUM
     Indication: PRODUCT USED FOR UNKNOWN INDICATION
     Dosage: 8 PILLS (DAILY) QD
     Route: 065
  2. PLAQUENIL [Concomitant]
     Active Substance: HYDROXYCHLOROQUINE SULFATE
     Indication: RHEUMATOID ARTHRITIS
     Dosage: 200 MG, TID
     Route: 048
     Dates: start: 1998
  3. PREDNISONE. [Concomitant]
     Active Substance: PREDNISONE
     Dosage: 10 MG, QD (5 MG 2 TABLETS)
     Route: 048
  4. XELJANZ [Concomitant]
     Active Substance: TOFACITINIB CITRATE
  5. ENBREL [Suspect]
     Active Substance: ETANERCEPT
     Indication: RHEUMATOID ARTHRITIS
     Dosage: 50 MG, QWK
     Route: 065
     Dates: start: 201701, end: 20180710
  6. MTX [Suspect]
     Active Substance: METHOTREXATE SODIUM
     Dosage: 10 MG, UNK (INJECTABLE FORMULATION)
     Route: 065
  7. MOBIC [Concomitant]
     Active Substance: MELOXICAM
     Indication: RHEUMATOID ARTHRITIS
     Dosage: 15 MG, QD
     Route: 048
     Dates: start: 2004
  8. XELJANZ XR [Concomitant]
     Active Substance: TOFACITINIB CITRATE
     Indication: RHEUMATOID ARTHRITIS
     Dosage: 11 MG, QD
     Route: 048
     Dates: start: 20180728

REACTIONS (11)
  - Injection site pain [Unknown]
  - Fatigue [Unknown]
  - Injection site bruising [Not Recovered/Not Resolved]
  - Pain [Not Recovered/Not Resolved]
  - Liver function test increased [Unknown]
  - Neuropathy peripheral [Unknown]
  - Drug effect decreased [Unknown]
  - Malaise [Unknown]
  - Ventricular extrasystoles [Unknown]
  - Insomnia [Not Recovered/Not Resolved]
  - Labelled drug-disease interaction medication error [Unknown]

NARRATIVE: CASE EVENT DATE: 201808
